FAERS Safety Report 10080318 (Version 1)
Quarter: 2014Q2

REPORT INFORMATION
  Report Type: Spontaneous
  Country: DE (occurrence: DE)
  Receive Date: 20140415
  Receipt Date: 20140415
  Transmission Date: 20141212
  Serious: Yes (Death, Other)
  Sender: FDA-Public Use
  Company Number: PHHY2014DE045656

PATIENT
  Sex: 0

DRUGS (12)
  1. CICLOSPORIN [Suspect]
     Indication: PROPHYLAXIS AGAINST GRAFT VERSUS HOST DISEASE
  2. CICLOSPORIN [Suspect]
     Indication: GRAFT VERSUS HOST DISEASE
  3. PREDNISONE [Suspect]
     Indication: GRAFT VERSUS HOST DISEASE
  4. MYCOPHENOLATE MOFETIL [Suspect]
     Indication: GRAFT VERSUS HOST DISEASE
  5. IRRADIATION [Concomitant]
     Indication: ACUTE MYELOID LEUKAEMIA
     Dosage: 12 GY, IN SIX FRACTIONS OVER 3 DAYS
  6. CYCLOPHOSPHAMIDE [Concomitant]
     Indication: ACUTE MYELOID LEUKAEMIA
     Dosage: 60 MG/KG, BID
     Route: 042
  7. ETOPOSIDE [Concomitant]
     Indication: ACUTE MYELOID LEUKAEMIA
     Dosage: 30 MG/KG, QD
     Route: 042
  8. IDARUBICIN [Concomitant]
     Indication: CHEMOTHERAPY
     Dosage: 10 MG/M2, QD
     Route: 042
  9. CYTOSINE ARABINOSIDE [Concomitant]
     Indication: CHEMOTHERAPY
     Dosage: 100 MG/M2, UNK
     Route: 042
  10. GRANULOCYTE COLONY-STIMULATING FACTOR NOS [Concomitant]
     Dosage: 5 UG/KG, UNK
  11. MOLGRAMOSTIM [Concomitant]
     Dosage: 60 UG/KG, UNK
  12. MERIEUX [Concomitant]
     Dosage: 2.5 MG/KG, PER DAY

REACTIONS (3)
  - Pneumonia [Fatal]
  - Leukaemia recurrent [Unknown]
  - Acute graft versus host disease [Unknown]
